FAERS Safety Report 19913236 (Version 1)
Quarter: 2021Q4

REPORT INFORMATION
  Report Type: Spontaneous
  Country: FR (occurrence: FR)
  Receive Date: 20211004
  Receipt Date: 20211004
  Transmission Date: 20220303
  Serious: Yes (Congenital Anomaly, Other)
  Sender: FDA-Public Use
  Company Number: FR-ABBVIE-21K-056-4099803-00

PATIENT
  Sex: Female

DRUGS (1)
  1. VALPROATE SODIUM [Suspect]
     Active Substance: VALPROATE SODIUM
     Indication: Maternal exposure timing unspecified
     Route: 064

REACTIONS (32)
  - Learning disability [Unknown]
  - Scarlet fever [Unknown]
  - Ear infection [Unknown]
  - Rhinitis allergic [Unknown]
  - Tonsillitis [Unknown]
  - Joint laxity [Unknown]
  - Foot deformity [Unknown]
  - Pectus excavatum [Recovering/Resolving]
  - Intellectual disability [Unknown]
  - Attention deficit hyperactivity disorder [Unknown]
  - Executive dysfunction [Unknown]
  - Distractibility [Unknown]
  - Tympanic membrane disorder [Unknown]
  - Ear pain [Unknown]
  - Nasal flaring [Unknown]
  - Behaviour disorder [Unknown]
  - Haemangioma [Unknown]
  - Dermatitis atopic [Unknown]
  - Hypermetropia [Unknown]
  - Dyslexia [Unknown]
  - Dysgraphia [Unknown]
  - Cognitive disorder [Unknown]
  - Skin disorder [Unknown]
  - Nasopharyngitis [Unknown]
  - Disturbance in attention [Unknown]
  - Malaise [Unknown]
  - Bronchitis [Unknown]
  - Psychomotor hyperactivity [Unknown]
  - Pharyngitis [Unknown]
  - Learning disorder [Unknown]
  - Otitis media [Unknown]
  - Foetal exposure during pregnancy [Unknown]

NARRATIVE: CASE EVENT DATE: 20090101
